FAERS Safety Report 13487969 (Version 1)
Quarter: 2017Q2

REPORT INFORMATION
  Report Type: Spontaneous
  Country: US (occurrence: US)
  Receive Date: 20170426
  Receipt Date: 20170426
  Transmission Date: 20170830
  Serious: No
  Sender: FDA-Public Use
  Company Number: US-ALKERMES INC.-ALK-2016-000927

PATIENT
  Age: 23 Year
  Sex: Male

DRUGS (1)
  1. VIVITROL [Suspect]
     Active Substance: NALTREXONE
     Indication: DRUG USE DISORDER
     Dosage: 380 MG, QMO
     Route: 030
     Dates: start: 20160428

REACTIONS (6)
  - Irritability [Unknown]
  - Injection site pain [Unknown]
  - Abdominal pain upper [Unknown]
  - Vomiting [Unknown]
  - Injection site reaction [Unknown]
  - Anger [Unknown]

NARRATIVE: CASE EVENT DATE: 201604
